FAERS Safety Report 10953926 (Version 1)
Quarter: 2015Q1

REPORT INFORMATION
  Report Type: Spontaneous
  Country: None (occurrence: None)
  Receive Date: 20150226
  Receipt Date: 20150226
  Transmission Date: 20150721
  Serious: Yes (Hospitalization)
  Sender: FDA-Public Use
  Company Number: TPA2009A04113

PATIENT
  Sex: Female

DRUGS (1)
  1. PREVACID [Suspect]
     Active Substance: LANSOPRAZOLE
     Indication: PRODUCT USED FOR UNKNOWN INDICATION
     Dates: end: 200911

REACTIONS (4)
  - Gastrointestinal haemorrhage [None]
  - Lethargy [None]
  - Haematemesis [None]
  - Nausea [None]

NARRATIVE: CASE EVENT DATE: 20091111
